FAERS Safety Report 8622049-5 (Version None)
Quarter: 2012Q3

REPORT INFORMATION
  Report Type: 
  Country: None (occurrence: None)
  Receive Date: 20120823
  Receipt Date: 20120823
  Transmission Date: 20120928
  Serious: Yes (Life-Threatening, Hospitalization)
  Sender: FDA-Public Use
  Company Number: None

PATIENT
  Age: 60 Year
  Sex: Male
  Weight: 97.5234 kg

DRUGS (1)
  1. DELSYM [Suspect]
     Indication: COUGH
     Dosage: 10 ML, 12 HOURS, ORAL
     Route: 048
     Dates: start: 20120112

REACTIONS (4)
  - COUGH [None]
  - VOCAL CORD PARALYSIS [None]
  - STRIDOR [None]
  - CONDITION AGGRAVATED [None]
